FAERS Safety Report 14070188 (Version 1)
Quarter: 2017Q4

REPORT INFORMATION
  Report Type: Spontaneous
  Country: HU (occurrence: HU)
  Receive Date: 20171011
  Receipt Date: 20171011
  Transmission Date: 20180321
  Serious: Yes (Disabling, Other)
  Sender: FDA-Public Use
  Company Number: HU-ROCHE-1976250

PATIENT
  Age: 57 Year
  Sex: Male

DRUGS (2)
  1. SYNCUMAR [Concomitant]
     Active Substance: ACENOCOUMAROL
     Indication: PRODUCT USED FOR UNKNOWN INDICATION
  2. ACTILYSE [Suspect]
     Active Substance: ALTEPLASE
     Indication: CEREBROVASCULAR ACCIDENT
     Route: 065

REACTIONS (4)
  - Therapy non-responder [Unknown]
  - Haemorrhage intracranial [Not Recovered/Not Resolved]
  - Brain oedema [Not Recovered/Not Resolved]
  - Brain midline shift [Not Recovered/Not Resolved]

NARRATIVE: CASE EVENT DATE: 2009
